FAERS Safety Report 23123564 (Version 4)
Quarter: 2023Q4

REPORT INFORMATION
  Report Type: Spontaneous
  Country: MX (occurrence: MX)
  Receive Date: 20231030
  Receipt Date: 20231229
  Transmission Date: 20240110
  Serious: Yes (Hospitalization)
  Sender: FDA-Public Use
  Company Number: MX-NOVOPROD-1129851

PATIENT
  Sex: Male
  Weight: 80 kg

DRUGS (4)
  1. NOVOEIGHT [Suspect]
     Active Substance: ANTIHEMOPHILIC FACTOR, HUMAN RECOMBINANT
     Indication: Factor VIII deficiency
     Dosage: 3000 IU, BID
     Route: 042
     Dates: start: 201610
  2. PREDNISONE [Concomitant]
     Active Substance: PREDNISONE
     Dosage: AFTERWARDS 3/4 IN THE MORNING AND 1 AT NIGHT, 1/2 IN THE MORNING
  3. PREDNISONE [Concomitant]
     Active Substance: PREDNISONE
     Dosage: 50 MG, QD(1 AT NIGHT )
  4. PREDNISONE [Concomitant]
     Active Substance: PREDNISONE
     Dosage: 50 MG, BIDI(1 IN THE MORNING AND 1 AT NIGHT, AFTERWARDS 3/4 IN THE MORNING AND 1 AT NIGHT)

REACTIONS (1)
  - Arthropathy [Recovering/Resolving]

NARRATIVE: CASE EVENT DATE: 20231012
